FAERS Safety Report 23112284 (Version 2)
Quarter: 2023Q4

REPORT INFORMATION
  Report Type: Report from Study
  Country: US (occurrence: US)
  Receive Date: 20231026
  Receipt Date: 20231027
  Transmission Date: 20240110
  Serious: Yes (Death)
  Sender: FDA-Public Use
  Company Number: US-ABBVIE-5467508

PATIENT
  Sex: Male

DRUGS (27)
  1. VENCLEXTA [Suspect]
     Active Substance: VENETOCLAX
     Indication: Plasma cell myeloma
     Dosage: LINE OF THERAPY: THIRD OR GREATER
  2. VENCLEXTA [Suspect]
     Active Substance: VENETOCLAX
     Indication: Plasma cell myeloma
     Dosage: TAKE 4 TABLET(S) BY MOUTH (400MG TOTAL) DAILY WITH BREAKFAST 100MG TABLET
     Route: 048
  3. ASPIRIN [Concomitant]
     Active Substance: ASPIRIN
     Indication: Product used for unknown indication
     Dosage: TAKE 1 TABLET (81 MG TOTAL) BY MOUTH DAILY
     Route: 048
  4. DOVONEX [Concomitant]
     Active Substance: CALCIPOTRIENE
     Indication: Product used for unknown indication
     Dosage: MIX WITH EFUDEX AND APPLY MIXTURE TO AFFECTED AREAS TWICE A DAY?FOR 4 DAYS
  5. CALCIUM CARBONATE\CHOLECALCIFEROL [Concomitant]
     Active Substance: CALCIUM CARBONATE\CHOLECALCIFEROL
     Indication: Product used for unknown indication
     Dosage: TAKE 1 TABLET BY MOUTH DAILY
     Route: 048
  6. VITAMIN B12 [Concomitant]
     Active Substance: CYANOCOBALAMIN
     Indication: Product used for unknown indication
     Dosage: TAKE 500 MCG BY MOUTH TWO (2) TIMES DAILY
     Route: 048
  7. DARATUMUMAB [Concomitant]
     Active Substance: DARATUMUMAB
     Indication: Product used for unknown indication
     Route: 042
  8. FOLIC ACID [Concomitant]
     Active Substance: FOLIC ACID
     Indication: Product used for unknown indication
     Dosage: TAKE 1 TABLET BY MOUTH DAILY
     Route: 048
  9. COLACE [Concomitant]
     Active Substance: DOCUSATE SODIUM
     Indication: Product used for unknown indication
     Dosage: TIME INTERVAL: 0.33333333 DAYS: TAKE 1 CAPSULE (100 MG TOTAL) BY MOUTH THREE (3) TIMES DAILY
     Route: 048
  10. PEPCID [Concomitant]
     Active Substance: FAMOTIDINE
     Indication: Product used for unknown indication
     Dosage: TAKE 1 TABLET (20 MG TOTAL) BY MOUTH TWO (2) TIMES DAILY
     Route: 048
  11. FML [Concomitant]
     Active Substance: FLUOROMETHOLONE
     Indication: Product used for unknown indication
     Dosage: INSTILL 1 DROP INTO RIGHT EYE TWICE A DAY
     Route: 047
  12. EFUDEX [Concomitant]
     Active Substance: FLUOROURACIL
     Indication: Product used for unknown indication
     Dosage: MIX WITH CALCIPOTRIENE AND APPLY MIXTURE THINLY TO AFFECTED?AREAS TWICE A DAY FOR 4 DAYS
     Route: 061
  13. LASIX [Concomitant]
     Active Substance: FUROSEMIDE
     Indication: Product used for unknown indication
     Dosage: TAKE 1 TABLET EVERY OTHER DAY
     Route: 048
  14. HYDREA [Concomitant]
     Active Substance: HYDROXYUREA
     Indication: Product used for unknown indication
     Dosage: TAKE 2 CAPSULES BY MOUTH TWICE A DAY
     Route: 048
  15. PRINIVIL [Concomitant]
     Active Substance: LISINOPRIL
     Indication: Product used for unknown indication
     Dosage: TAKE 1 TABLET (5 MG TOTAL) BY MOUTH DAILY
     Route: 048
  16. ZESTRIL [Concomitant]
     Active Substance: LISINOPRIL
     Indication: Product used for unknown indication
     Dosage: TAKE 1 TABLET (5 MG TOTAL) BY MOUTH DAILY
     Route: 048
  17. ATIVAN [Concomitant]
     Active Substance: LORAZEPAM
     Indication: Anxiety
     Dosage: TAKE 1 TABLET (1 MG TOTAL) BY MOUTH AT BEDTIME AS NEEDED FOR ANXIETY. MAX DAILY?AMOUNT: 1 MG
     Route: 048
  18. MAGNESIUM [Concomitant]
     Active Substance: MAGNESIUM
     Indication: Product used for unknown indication
     Dosage: TAKE 1 TABLET BY MOUTH DAILY.
     Route: 048
  19. MOBIC [Concomitant]
     Active Substance: MELOXICAM
     Indication: Product used for unknown indication
     Dosage: TAKE 1 TABLET (7.5 MG TOTAL) BY MOUTH DAILY.
     Route: 048
  20. TOPROL XL [Concomitant]
     Active Substance: METOPROLOL SUCCINATE
     Indication: Product used for unknown indication
     Dosage: TAKE 1 TABLET IN THE MORNING AND TAKE 2 TABLETS AT NIGHT
     Route: 048
  21. BACTROBAN [Concomitant]
     Active Substance: MUPIROCIN\MUPIROCIN CALCIUM
     Indication: Product used for unknown indication
     Dosage: APPLY TOPICALLY TWO (2) TIMES DAILY PLEASE APPLY THIS TO INCISIONS FOR TWICE A DAY FOR?THREE DAYS...
     Route: 061
  22. ZOFRAN [Concomitant]
     Active Substance: ONDANSETRON HYDROCHLORIDE
     Indication: Nausea
     Dosage: TAKE 1 TABLET (8 MG TOTAL) BY MOUTH EVERY EIGHT (8) HOURS AS NEEDED FOR NAUSEA OR?VOMITING
     Route: 048
  23. POMALYST [Concomitant]
     Active Substance: POMALIDOMIDE
     Indication: Product used for unknown indication
     Dosage: TAKE 1 CAPSULE BY MOUTH ONCE DAILY FOR 21 DAYS ON AND 7 DAYS OFF
     Route: 048
  24. POTASSIUM CHLORIDE [Concomitant]
     Active Substance: POTASSIUM CHLORIDE
     Indication: Product used for unknown indication
     Dosage: TAKE 1 TABLET (20 MEQ TOTAL) BY MOUTH DAILY
     Route: 048
  25. VIAGRA [Concomitant]
     Active Substance: SILDENAFIL CITRATE
     Indication: Erectile dysfunction
     Dosage: TAKE 1 TABLET (25 MG TOTAL) BY MOUTH DAILY AS NEEDED FOR ERECTILE DYSFUNCTION
     Route: 048
  26. TOBRADEX [Concomitant]
     Active Substance: DEXAMETHASONE\TOBRAMYCIN
     Indication: Product used for unknown indication
     Dosage: TIME INTERVAL: 0.33333333 DAYS: INSTILL 1 DROP INTO RIGHT EYE 3 TIMES A DAY
     Route: 047
  27. ZOMETA [Concomitant]
     Active Substance: ZOLEDRONIC ACID
     Indication: Product used for unknown indication
     Dosage: 4 MG/5 ML CONC.?INJECT 5 MLS (4 MG TOTAL) INTO THE VEIN ONCE EVERY 6 MONTHS
     Route: 042

REACTIONS (2)
  - Myelofibrosis [Fatal]
  - Off label use [Unknown]
